FAERS Safety Report 10486826 (Version 1)
Quarter: 2014Q3

REPORT INFORMATION
  Report Type: Spontaneous
  Country: US (occurrence: None)
  Receive Date: 20140930
  Receipt Date: 20140930
  Transmission Date: 20150326
  Serious: No
  Sender: FDA-Public Use
  Company Number: None

PATIENT
  Age: 53 Year
  Sex: Male

DRUGS (22)
  1. REVLIMID [Suspect]
     Active Substance: LENALIDOMIDE
     Indication: DIFFUSE LARGE B-CELL LYMPHOMA
     Dosage: 21 IN 28 DAYS.
     Route: 048
     Dates: start: 20130905, end: 20140918
  2. CYCLOBENZAPRINE [Concomitant]
     Active Substance: CYCLOBENZAPRINE
  3. LIDOCAINE. [Concomitant]
     Active Substance: LIDOCAINE
  4. VISC-MAALOX [Concomitant]
  5. ALLOPURINOL. [Concomitant]
     Active Substance: ALLOPURINOL
  6. DOCUSATE [Concomitant]
     Active Substance: DOCUSATE
  7. BACLOFEN. [Concomitant]
     Active Substance: BACLOFEN
  8. MOUTHWASH [Concomitant]
  9. METFORMIN [Concomitant]
     Active Substance: METFORMIN HYDROCHLORIDE
  10. EMTRICITABINE-TENOFOVIR [Concomitant]
  11. PREDNISOLONE. [Concomitant]
     Active Substance: PREDNISOLONE
  12. ONDANSETRON [Concomitant]
     Active Substance: ONDANSETRON
  13. METOCLOPRAMIDE. [Concomitant]
     Active Substance: METOCLOPRAMIDE
  14. ASPIRIN. [Concomitant]
     Active Substance: ASPIRIN
  15. LORAZEPAM. [Concomitant]
     Active Substance: LORAZEPAM
  16. GLIPIZIDE. [Concomitant]
     Active Substance: GLIPIZIDE
  17. ATORVASTATIN [Concomitant]
     Active Substance: ATORVASTATIN
  18. PROCHLORPERAZINE. [Concomitant]
     Active Substance: PROCHLORPERAZINE
  19. HYDROCODONE ACETAMINOPHEN [Concomitant]
     Active Substance: ACETAMINOPHEN\HYDROCODONE BITARTRATE
  20. LISINOPRIL. [Concomitant]
     Active Substance: LISINOPRIL
  21. RALTEGRAVIR [Concomitant]
     Active Substance: RALTEGRAVIR
  22. CETIRIZINE [Concomitant]
     Active Substance: CETIRIZINE HYDROCHLORIDE

REACTIONS (1)
  - Neutropenia [None]

NARRATIVE: CASE EVENT DATE: 20140919
